FAERS Safety Report 8310266-3 (Version None)
Quarter: 2012Q2

REPORT INFORMATION
  Report Type: 
  Country: None (occurrence: None)
  Receive Date: 20120425
  Receipt Date: 20120423
  Transmission Date: 20120825
  Serious: Yes (Other)
  Sender: FDA-Public Use
  Company Number: RU-BAYER-2011-065558

PATIENT
  Age: 60 Year
  Sex: Male

DRUGS (7)
  1. CAPTOPRIL [Concomitant]
     Indication: HYPERTENSION
     Dosage: UNK
     Route: 048
     Dates: end: 20110719
  2. SORAFENIB (RAF KINASE INHIBITOR) [Suspect]
     Dosage: 200 MG, QD
     Route: 048
     Dates: start: 20110720
  3. PRONORAN [Concomitant]
     Indication: PARKINSON'S DISEASE
     Dosage: 1 DF, TID
     Route: 048
  4. NAKOM [Concomitant]
     Indication: PARKINSON'S DISEASE
     Dosage: 0.5 DF, TID
     Route: 048
  5. PK-MERZ [Concomitant]
     Indication: PARKINSON'S DISEASE
     Dosage: 0.5 DF, TID
     Route: 048
  6. SORAFENIB (RAF KINASE INHIBITOR) [Suspect]
     Dosage: 200 MG, BID
     Route: 048
     Dates: start: 20110620, end: 20110719
  7. SORAFENIB (RAF KINASE INHIBITOR) [Suspect]
     Indication: RENAL CANCER
     Dosage: 400 MG, BID
     Dates: start: 20110528, end: 20110530

REACTIONS (12)
  - RENAL PAIN [None]
  - CONSTIPATION [None]
  - CONVULSION [None]
  - PROSTATITIS [None]
  - PARAESTHESIA ORAL [None]
  - HYPOAESTHESIA ORAL [None]
  - DYSPEPSIA [None]
  - PALMAR-PLANTAR ERYTHRODYSAESTHESIA SYNDROME [None]
  - PAIN IN EXTREMITY [None]
  - CONVULSIONS LOCAL [None]
  - BLOOD PRESSURE INCREASED [None]
  - DYSURIA [None]
